FAERS Safety Report 20946408 (Version 3)
Quarter: 2022Q2

REPORT INFORMATION
  Report Type: Spontaneous
  Country: FR (occurrence: FR)
  Receive Date: 20220610
  Receipt Date: 20220630
  Transmission Date: 20220721
  Serious: Yes (Other)
  Sender: FDA-Public Use
  Company Number: FR-ORGANON-O2206FRA000793

PATIENT
  Age: 32 Year
  Sex: Female

DRUGS (1)
  1. ETONOGESTREL [Suspect]
     Active Substance: ETONOGESTREL
     Dosage: 1 IMPLANT (LEFT ARM)
     Route: 059
     Dates: start: 202112

REACTIONS (5)
  - Pregnancy with implant contraceptive [Not Recovered/Not Resolved]
  - Haematoma [Unknown]
  - Unintended pregnancy [Not Recovered/Not Resolved]
  - Complication associated with device [Not Recovered/Not Resolved]
  - Implant site scar [Unknown]

NARRATIVE: CASE EVENT DATE: 20211201
